FAERS Safety Report 14222498 (Version 2)
Quarter: 2018Q1

REPORT INFORMATION
  Report Type: Spontaneous
  Country: US (occurrence: US)
  Receive Date: 20171124
  Receipt Date: 20180119
  Transmission Date: 20180508
  Serious: No
  Sender: FDA-Public Use
  Company Number: US-LEO PHARMA-305487

PATIENT
  Sex: Female

DRUGS (2)
  1. PICATO [Suspect]
     Active Substance: INGENOL MEBUTATE
     Indication: ACTINIC KERATOSIS
     Dosage: 1 TUBE DAILY
     Route: 061
     Dates: start: 20171113, end: 20171115
  2. CHEMOTHERAPY [Concomitant]
     Active Substance: UNSPECIFIED INGREDIENT
     Indication: PRODUCT USED FOR UNKNOWN INDICATION
     Dates: start: 201708

REACTIONS (4)
  - Application site erythema [Not Recovered/Not Resolved]
  - Eyelid ptosis [Recovered/Resolved]
  - Application site swelling [Recovered/Resolved]
  - Application site pain [Recovered/Resolved]
